FAERS Safety Report 11078615 (Version 1)
Quarter: 2015Q2

REPORT INFORMATION
  Report Type: Spontaneous
  Country: CN (occurrence: None)
  Receive Date: 20150428
  Receipt Date: 20150428
  Transmission Date: 20150821
  Serious: Yes (Hospitalization, Other)
  Sender: FDA-Public Use
  Company Number: CN2015GSK054365

PATIENT
  Age: 61 Year
  Sex: Male
  Weight: 36 kg

DRUGS (3)
  1. HEPTODIN [Suspect]
     Active Substance: LAMIVUDINE
     Indication: ACQUIRED IMMUNODEFICIENCY SYNDROME
     Route: 048
     Dates: start: 20121010, end: 20140829
  2. VIREAD [Suspect]
     Active Substance: TENOFOVIR DISOPROXIL FUMARATE
     Indication: ACQUIRED IMMUNODEFICIENCY SYNDROME
     Route: 048
     Dates: start: 20121010, end: 20140829
  3. KALETRA [Suspect]
     Active Substance: LOPINAVIR\RITONAVIR
     Indication: ACQUIRED IMMUNODEFICIENCY SYNDROME
     Route: 048
     Dates: start: 20121010, end: 20140829

REACTIONS (6)
  - Acquired immunodeficiency syndrome [None]
  - Haemodialysis [None]
  - Renal impairment [None]
  - Condition aggravated [None]
  - Off label use [None]
  - Blood creatinine increased [None]

NARRATIVE: CASE EVENT DATE: 20140822
